FAERS Safety Report 22241966 (Version 3)
Quarter: 2024Q3

REPORT INFORMATION
  Report Type: Report from Study
  Country: MX (occurrence: MX)
  Receive Date: 20230421
  Receipt Date: 20240808
  Transmission Date: 20241017
  Serious: Yes (Life-Threatening, Hospitalization, Other)
  Sender: NOVARTIS
  Company Number: MX-002147023-NVSC2023MX080609

PATIENT
  Age: 64 Year
  Sex: Male
  Weight: 67 kg

DRUGS (5)
  1. ELTROMBOPAG OLAMINE [Suspect]
     Active Substance: ELTROMBOPAG OLAMINE
     Indication: Immune thrombocytopenia
     Dosage: 1 DOSAGE FORM, QD
     Route: 048
     Dates: start: 202301
  2. ELTROMBOPAG OLAMINE [Suspect]
     Active Substance: ELTROMBOPAG OLAMINE
     Dosage: 1 DOSAGE FORM, Q48H (25 MG)
     Route: 048
     Dates: start: 202301
  3. ELTROMBOPAG OLAMINE [Suspect]
     Active Substance: ELTROMBOPAG OLAMINE
     Dosage: 25 MG
     Route: 065
  4. ELTROMBOPAG OLAMINE [Suspect]
     Active Substance: ELTROMBOPAG OLAMINE
     Dosage: 25 MG, OTHER (STARTED IN JAN OR FEB 2023-MAR OR APR 2023)
     Route: 048
     Dates: start: 2023, end: 2023
  5. ELTROMBOPAG OLAMINE [Suspect]
     Active Substance: ELTROMBOPAG OLAMINE
     Dosage: 1 DOSAGE FORM (50 MG), OTHER (STARTED IN APR OR MAY 2023) 50 MG 1 TABLET A DAY FROM TUESDAY TO SATUR
     Route: 048
     Dates: start: 2023

REACTIONS (3)
  - Acute pulmonary oedema [Recovered/Resolved]
  - Platelet count increased [Unknown]
  - Cardiac failure [Recovering/Resolving]

NARRATIVE: CASE EVENT DATE: 20230301
